FAERS Safety Report 20686464 (Version 1)
Quarter: 2022Q2

REPORT INFORMATION
  Report Type: Other
  Country: CN (occurrence: CN)
  Receive Date: 20220407
  Receipt Date: 20220407
  Transmission Date: 20220720
  Serious: Yes (Other)
  Sender: FDA-Public Use
  Company Number: 2022CN00318

PATIENT

DRUGS (1)
  1. GAVRETO [Suspect]
     Active Substance: PRALSETINIB
     Indication: Product used for unknown indication
     Route: 048

REACTIONS (6)
  - Myocardial injury [Unknown]
  - Rhabdomyolysis [Unknown]
  - Atrial fibrillation [Unknown]
  - Interstitial lung disease [Unknown]
  - Dysphagia [Unknown]
  - Swelling face [Unknown]
